FAERS Safety Report 7446608-0 (Version None)
Quarter: 2011Q2

REPORT INFORMATION
  Report Type: 
  Country: None (occurrence: None)
  Receive Date: 20110429
  Receipt Date: 20110420
  Transmission Date: 20111010
  Serious: Yes (Hospitalization, Other)
  Sender: FDA-Public Use
  Company Number: PHHY2011RU34223

PATIENT
  Age: 58 Year
  Sex: Male

DRUGS (3)
  1. METFORMIN [Concomitant]
  2. DICLAC [Suspect]
     Route: 048
  3. ENALAPRIL [Concomitant]

REACTIONS (6)
  - DYSPNOEA [None]
  - PRURITUS [None]
  - DYSPHONIA [None]
  - SWOLLEN TONGUE [None]
  - OEDEMA MOUTH [None]
  - LIP OEDEMA [None]
